FAERS Safety Report 26156000 (Version 1)
Quarter: 2025Q4

REPORT INFORMATION
  Report Type: Spontaneous
  Country: EU (occurrence: EU)
  Receive Date: 20251215
  Receipt Date: 20251215
  Transmission Date: 20260118
  Serious: Yes (Other)
  Sender: ASTELLAS
  Company Number: None

PATIENT
  Age: 42 Year
  Sex: Male

DRUGS (1)
  1. XOSPATA [Suspect]
     Active Substance: GILTERITINIB
     Indication: Acute myeloid leukaemia
     Route: 048
     Dates: start: 20250814

REACTIONS (3)
  - Hypertension [Unknown]
  - Electrocardiogram QT prolonged [Unknown]
  - Heart rate increased [Unknown]

NARRATIVE: CASE EVENT DATE: 20251128
